FAERS Safety Report 4332145-9 (Version None)
Quarter: 2004Q2

REPORT INFORMATION
  Report Type: 
  Country: None (occurrence: None)
  Receive Date: 20040401
  Receipt Date: 20040401
  Transmission Date: 20050107
  Serious: Yes (Life-Threatening, Hospitalization)
  Sender: FDA-Public Use
  Company Number: None

PATIENT
  Sex: Female
  Weight: 55 kg

DRUGS (1)
  1. IFOSFAMIDE [Suspect]
     Indication: B-CELL LYMPHOMA
     Dates: start: 20040116, end: 20040118

REACTIONS (5)
  - CONFUSIONAL STATE [None]
  - ENCEPHALOPATHY [None]
  - HYPOTONIA [None]
  - MENTAL STATUS CHANGES [None]
  - SOMNOLENCE [None]
